FAERS Safety Report 6938359-3 (Version None)
Quarter: 2010Q3

REPORT INFORMATION
  Report Type: 
  Country: None (occurrence: None)
  Receive Date: 20100824
  Receipt Date: 20100812
  Transmission Date: 20110219
  Serious: Yes (Other)
  Sender: FDA-Public Use
  Company Number: JP-PFIZER INC-2010101301

PATIENT
  Age: 45 Year
  Sex: Male

DRUGS (2)
  1. VFEND [Suspect]
     Dosage: 4 MG/KG
  2. VFEND [Suspect]
     Dosage: 3 MG/KG

REACTIONS (1)
  - ALTERED STATE OF CONSCIOUSNESS [None]
